FAERS Safety Report 7757578-X (Version None)
Quarter: 2011Q3

REPORT INFORMATION
  Report Type: 
  Country: None (occurrence: None)
  Receive Date: 20110916
  Receipt Date: 20110907
  Transmission Date: 20111222
  Serious: Yes (Death, Hospitalization)
  Sender: FDA-Public Use
  Company Number: GB-CELGENEUS-167-20785-11090776

PATIENT
  Age: 74 Year
  Sex: Male

DRUGS (3)
  1. CYCLOPHOSPHAMIDE [Suspect]
     Indication: MULTIPLE MYELOMA
     Dosage: 500 MILLIGRAM
     Route: 048
     Dates: start: 20110606, end: 20110822
  2. THALIDOMIDE [Suspect]
     Indication: MULTIPLE MYELOMA
     Dosage: 50 MILLIGRAM
     Route: 048
     Dates: start: 20110606, end: 20110828
  3. DEXAMETHASONE [Suspect]
     Indication: MULTIPLE MYELOMA
     Dosage: 20 MILLIGRAM
     Route: 048
     Dates: start: 20110606, end: 20110818

REACTIONS (4)
  - HYPOXIA [None]
  - NEUTROPENIC SEPSIS [None]
  - ATRIAL FLUTTER [None]
  - PULMONARY EMBOLISM [None]
